FAERS Safety Report 5608174-1 (Version None)
Quarter: 2008Q1

REPORT INFORMATION
  Report Type: 
  Country: None (occurrence: None)
  Receive Date: 20080130
  Receipt Date: 20080124
  Transmission Date: 20080703
  Serious: Yes (Other)
  Sender: FDA-Public Use
  Company Number: US-ASTRAZENECA-2008UW01801

PATIENT
  Age: 51 Year
  Sex: Male

DRUGS (5)
  1. SEROQUEL [Suspect]
     Route: 048
     Dates: start: 20071101
  2. LEXAPRO [Concomitant]
  3. TRICOR [Concomitant]
  4. TOPROL-XL [Concomitant]
  5. ATIVAN [Concomitant]

REACTIONS (2)
  - GRAND MAL CONVULSION [None]
  - LOSS OF CONSCIOUSNESS [None]
